FAERS Safety Report 6903691-6 (Version None)
Quarter: 2010Q3

REPORT INFORMATION
  Report Type: 
  Country: None (occurrence: None)
  Receive Date: 20100803
  Receipt Date: 20081113
  Transmission Date: 20110219
  Serious: No
  Sender: FDA-Public Use
  Company Number: US-PFIZER INC-2008096935

PATIENT
  Sex: Male
  Weight: 78.636 kg

DRUGS (9)
  1. LYRICA [Suspect]
     Indication: RESTLESS LEGS SYNDROME
     Route: 048
     Dates: start: 20081112
  2. GABAPENTIN [Suspect]
     Indication: RESTLESS LEGS SYNDROME
     Dates: start: 20080101
  3. LIDOCAINE HYDROCHLORIDE [Suspect]
     Indication: DENTAL CARE
     Dates: start: 20081113
  4. PROPOXYPHENE HCL [Suspect]
     Indication: RESTLESS LEGS SYNDROME
     Dates: start: 20080101
  5. COZAAR [Concomitant]
  6. VYTORIN [Concomitant]
  7. BETA BLOCKING AGENTS [Concomitant]
     Indication: HYPERTENSION
  8. OTHER HYPNOTICS AND SEDATIVES [Concomitant]
  9. ALL OTHER THERAPEUTIC PRODUCTS [Concomitant]
     Indication: SPINAL COLUMN STENOSIS

REACTIONS (3)
  - ANXIETY [None]
  - DRUG INEFFECTIVE [None]
  - RESTLESSNESS [None]
